FAERS Safety Report 5748909-0 (Version None)
Quarter: 2008Q2

REPORT INFORMATION
  Report Type: 
  Country: None (occurrence: None)
  Receive Date: 20080525
  Receipt Date: 20080519
  Transmission Date: 20081010
  Serious: Yes (Other)
  Sender: FDA-Public Use
  Company Number: DE-RANBAXY-2008RR-15202

PATIENT

DRUGS (8)
  1. ASPIRIN [Suspect]
     Dosage: 160 MG, UNK
  2. ASPIRIN [Suspect]
     Dosage: 325 MG, UNK
  3. ASPIRIN [Suspect]
     Dosage: 81 MG, QD
  4. HEPARIN [Suspect]
     Dosage: 5000U
     Route: 042
  5. ABCIXIMAB [Suspect]
     Dosage: 8 MG, BID
  6. CLOPIDOGREL [Suspect]
     Dosage: 300 MG, UNK
  7. CLOPIDOGREL [Suspect]
     Dosage: 75 MG, UNK
  8. SIMVASTATIN [Suspect]

REACTIONS (2)
  - DRUG INTERACTION [None]
  - THROMBOCYTOPENIA [None]
